FAERS Safety Report 20125744 (Version 1)
Quarter: 2021Q4

REPORT INFORMATION
  Report Type: Spontaneous
  Country: CN (occurrence: CN)
  Receive Date: 20211129
  Receipt Date: 20211129
  Transmission Date: 20220303
  Serious: Yes (Other)
  Sender: FDA-Public Use
  Company Number: CN-PFIZER INC-202101619527

PATIENT
  Age: 10 Year
  Sex: Male
  Weight: 27.3 kg

DRUGS (1)
  1. METHOTREXATE [Suspect]
     Active Substance: METHOTREXATE
     Indication: Neoplasm malignant
     Dosage: 5.000 G, 1X/DAY
     Route: 041
     Dates: start: 20211031, end: 20211031

REACTIONS (3)
  - Mouth ulceration [Recovered/Resolved]
  - Oral pain [Recovered/Resolved]
  - Oral discharge [Recovered/Resolved]

NARRATIVE: CASE EVENT DATE: 20211031
